FAERS Safety Report 7568796-8 (Version None)
Quarter: 2011Q2

REPORT INFORMATION
  Report Type: 
  Country: None (occurrence: None)
  Receive Date: 20110623
  Receipt Date: 20110617
  Transmission Date: 20111010
  Serious: Yes (Death, Hospitalization)
  Sender: FDA-Public Use
  Company Number: GB-PFIZER INC-2006148370

PATIENT
  Age: 71 Year
  Sex: Male

DRUGS (11)
  1. ENOXAPARIN SODIUM [Concomitant]
     Route: 058
     Dates: start: 20060925
  2. PERSANTIN [Concomitant]
     Dates: start: 20060101, end: 20060101
  3. BISOPROLOL [Concomitant]
     Route: 048
  4. OMEPRAZOLE [Concomitant]
     Route: 048
  5. CYCLIZINE [Concomitant]
     Route: 048
  6. ACETAMINOPHEN AND CODEINE PHOSPHATE [Concomitant]
     Route: 048
  7. SUNITINIB MALATE [Suspect]
     Indication: GASTROINTESTINAL STROMAL TUMOUR
     Dosage: UNK
     Route: 048
     Dates: start: 20060307, end: 20061120
  8. DEXAMETHASONE [Concomitant]
     Route: 048
     Dates: start: 20060530
  9. BENDROFLUAZIDE [Concomitant]
     Route: 048
  10. LOPERAMIDE [Concomitant]
     Route: 048
  11. AMLODIPINE [Concomitant]
     Route: 048

REACTIONS (3)
  - CARDIAC ARREST [None]
  - CELLULITIS [None]
  - SEPSIS [None]
